FAERS Safety Report 9883654 (Version 9)
Quarter: 2015Q2

REPORT INFORMATION
  Report Type: Report from Study
  Country: IL (occurrence: IL)
  Receive Date: 20140210
  Receipt Date: 20150528
  Transmission Date: 20150821
  Serious: Yes (Hospitalization)
  Sender: FDA-Public Use
  Company Number: IL-ROCHE-1343349

PATIENT
  Age: 67 Year
  Sex: Male
  Weight: 93 kg

DRUGS (17)
  1. VINCRISTINE [Suspect]
     Active Substance: VINCRISTINE
     Indication: NON-HODGKIN^S LYMPHOMA
     Dosage: DATE OF MOST RECENT DOSE (2 MG) PRIOR TO EVENT : 22/JAN/2014.
     Route: 040
     Dates: start: 20131008
  2. NEULASTIM [Concomitant]
     Active Substance: PEGFILGRASTIM
     Indication: NEUTROPENIA
     Route: 065
     Dates: start: 20131012, end: 20140126
  3. OBINUTUZUMAB [Suspect]
     Active Substance: OBINUTUZUMAB
     Indication: NON-HODGKIN^S LYMPHOMA
     Dosage: DATE OF MOST RECENT DOSE (CONCENTRATION : 4 MG/ML AND VOLUME: 1000 ML) PRIOR TO EVENT : 22/JAN/2014.
     Route: 042
     Dates: start: 20131008
  4. OMEPRADEX [Concomitant]
     Active Substance: OMEPRAZOLE
     Indication: PREMEDICATION
     Route: 065
     Dates: start: 20131010
  5. STATOR [Concomitant]
     Indication: DYSLIPIDAEMIA
     Route: 065
     Dates: start: 2009
  6. PHENERGAN [Concomitant]
     Active Substance: PROMETHAZINE HYDROCHLORIDE
     Indication: PREMEDICATION
     Route: 065
     Dates: start: 20131008
  7. DIPYRONE [Concomitant]
     Active Substance: DIPYRONE
     Indication: PYREXIA
     Route: 065
     Dates: start: 20140202, end: 20140202
  8. COSOPT [Concomitant]
     Active Substance: DORZOLAMIDE HYDROCHLORIDE\TIMOLOL MALEATE
     Route: 065
     Dates: start: 20130501, end: 201411
  9. SETRON (ISRAEL) [Concomitant]
     Indication: PREMEDICATION
     Route: 065
     Dates: start: 20131010
  10. PARACETAMOL [Concomitant]
     Active Substance: ACETAMINOPHEN
     Indication: PYREXIA
     Route: 065
     Dates: start: 20140201, end: 20140201
  11. DIPYRONE [Concomitant]
     Active Substance: DIPYRONE
     Indication: HAEMORRHOIDS
  12. PROCTO-GLYVENOL CREAM [Concomitant]
     Indication: ANAL FISSURE
     Route: 065
     Dates: start: 20140204
  13. CYCLOPHOSPHAMIDE. [Suspect]
     Active Substance: CYCLOPHOSPHAMIDE
     Indication: NON-HODGKIN^S LYMPHOMA
     Dosage: DATE OF LAST DOSE (1480 MG) PRIOR TO EVENT : 22/JAN/2014.
     Route: 042
     Dates: start: 20131008, end: 20140122
  14. DOXORUBICIN [Suspect]
     Active Substance: DOXORUBICIN
     Indication: NON-HODGKIN^S LYMPHOMA
     Dosage: DATE OF MOST RECENT DOSE (98 MG) PRIOR TO EVENT : 22/JAN/2014.
     Route: 042
     Dates: start: 20131008
  15. PREDNISONE. [Suspect]
     Active Substance: PREDNISONE
     Indication: NON-HODGKIN^S LYMPHOMA
     Dosage: DATE OF MOST RECENT DOSE (100 MG) PRIOR TO EVENT : 26/JAN/2014.
     Route: 048
     Dates: start: 20131010
  16. OMNIC [Concomitant]
     Active Substance: TAMSULOSIN HYDROCHLORIDE
     Indication: BENIGN PROSTATIC HYPERPLASIA
     Route: 065
     Dates: start: 2009
  17. HYDROCORT (ISRAEL) [Concomitant]
     Indication: PREMEDICATION
     Route: 065
     Dates: start: 20131008

REACTIONS (1)
  - Febrile neutropenia [Recovered/Resolved]

NARRATIVE: CASE EVENT DATE: 20140131
